FAERS Safety Report 4924879-X (Version None)
Quarter: 2006Q1

REPORT INFORMATION
  Report Type: 
  Country: None (occurrence: None)
  Receive Date: 20060227
  Receipt Date: 20060221
  Transmission Date: 20060701
  Serious: Yes (Hospitalization)
  Sender: FDA-Public Use
  Company Number: US-MERCK-0602USA05406

PATIENT
  Age: 40 Year
  Sex: Female
  Weight: 86 kg

DRUGS (1)
  1. VIOXX [Suspect]
     Indication: EYE DEGENERATIVE DISORDER
     Route: 048
     Dates: start: 20010101, end: 20040930

REACTIONS (4)
  - HEADACHE [None]
  - LACUNAR INFARCTION [None]
  - REPRODUCTIVE TRACT DISORDER [None]
  - VERTIGO [None]
